FAERS Safety Report 9125808 (Version 1)
Quarter: 2013Q1

REPORT INFORMATION
  Report Type: Spontaneous
  Country: IN (occurrence: IN)
  Receive Date: 20130227
  Receipt Date: 20130227
  Transmission Date: 20140127
  Serious: Yes (Hospitalization)
  Sender: FDA-Public Use
  Company Number: PHHY2013IN018003

PATIENT
  Age: 6 Year
  Sex: Female

DRUGS (1)
  1. HALOPERIDOL [Suspect]
     Route: 048

REACTIONS (11)
  - Accidental poisoning [Recovered/Resolved]
  - Parkinsonism [Recovered/Resolved]
  - Altered state of consciousness [Recovered/Resolved]
  - Agitation [Unknown]
  - Vomiting [Unknown]
  - Pyrexia [Unknown]
  - Hyperhidrosis [Unknown]
  - Dystonia [Recovered/Resolved]
  - Hyperreflexia [Recovered/Resolved]
  - Opisthotonus [Recovered/Resolved]
  - Clonus [Recovered/Resolved]
